FAERS Safety Report 10019751 (Version 1)
Quarter: 2014Q1

REPORT INFORMATION
  Report Type: Spontaneous
  Country: US (occurrence: US)
  Receive Date: 20140318
  Receipt Date: 20140318
  Transmission Date: 20141002
  Serious: No
  Sender: FDA-Public Use
  Company Number: US-GALDERMA-US14000020

PATIENT
  Age: 31 Year
  Sex: Female

DRUGS (9)
  1. MIRVASO (BRIMONIDINE) TOPICAL GEL, 0.33% [Suspect]
     Indication: ROSACEA
     Dosage: 0.33%
     Route: 061
     Dates: start: 20131210, end: 20131226
  2. ROSADAN (METRONIDAZOLE) GEL [Concomitant]
     Indication: ROSACEA
     Route: 061
     Dates: start: 201311
  3. FINACEA (AZELAIC ACID) GEL [Concomitant]
     Indication: ROSACEA
     Route: 061
  4. EUCERIN REDNESS RELIEF CLEANSER [Concomitant]
     Indication: THERAPEUTIC SKIN CARE TOPICAL
     Route: 061
     Dates: start: 201306
  5. EUCERIN REDNESS RELIEF MOISTURIZER WITH SPF 25 [Concomitant]
     Indication: DRY SKIN PROPHYLAXIS
     Route: 061
     Dates: start: 201306
  6. EUCERIN REDNESS RELIEF MOISTURIZER WITH SPF 25 [Concomitant]
     Indication: PROPHYLAXIS AGAINST SOLAR RADIATION
  7. EUCERIN REDNESS RELIEF NIGHT CREAM [Concomitant]
     Indication: DRY SKIN PROPHYLAXIS
     Route: 061
     Dates: start: 201306
  8. GEORGIO ARMANI TINTED MOISTRUIZER WITH SUNSCREEN [Concomitant]
     Indication: THERAPEUTIC SKIN CARE TOPICAL
     Route: 061
  9. GEORGIO ARMANI TINTED MOISTRUIZER WITH SUNSCREEN [Concomitant]
     Indication: PROPHYLAXIS AGAINST SOLAR RADIATION

REACTIONS (3)
  - Condition aggravated [Recovered/Resolved]
  - Rash erythematous [Recovered/Resolved]
  - Erythema [Recovered/Resolved]
